FAERS Safety Report 10374766 (Version 1)
Quarter: 2014Q3

REPORT INFORMATION
  Report Type: Report from Study
  Country: LB (occurrence: LB)
  Receive Date: 20140811
  Receipt Date: 20140811
  Transmission Date: 20150326
  Serious: Yes (Death)
  Sender: FDA-Public Use
  Company Number: LB-SA-2014SA105434

PATIENT
  Age: 84 Year
  Sex: Female

DRUGS (12)
  1. HISTAMED [Concomitant]
     Route: 048
  2. LANTUS SOLOSTAR [Suspect]
     Active Substance: INSULIN GLARGINE
     Indication: DIABETES MELLITUS
     Dosage: DOSE:24 UNIT(S)
     Route: 058
     Dates: start: 201401
  3. SOLOSTAR [Concomitant]
     Active Substance: DEVICE
     Indication: DIABETES MELLITUS
     Dates: start: 201401
  4. TRADJENTA [Concomitant]
     Active Substance: LINAGLIPTIN
     Indication: DIABETES MELLITUS
     Route: 048
  5. MAGNE B6 [Concomitant]
     Active Substance: MAGNESIUM\PYRIDOXINE
     Route: 048
  6. BETASERC [Concomitant]
     Active Substance: BETAHISTINE
     Route: 048
  7. XARELTO [Concomitant]
     Active Substance: RIVAROXABAN
     Route: 048
  8. LIPONORM [Concomitant]
     Active Substance: ATORVASTATIN
     Route: 048
  9. DIAMICRON [Concomitant]
     Active Substance: GLICLAZIDE
     Indication: DIABETES MELLITUS
     Route: 048
  10. NEBILET [Concomitant]
     Active Substance: NEBIVOLOL
     Route: 048
  11. BONVIVA [Concomitant]
     Active Substance: IBANDRONATE SODIUM
     Route: 048
  12. TANGANIL [Concomitant]
     Active Substance: ACETYLLEUCINE
     Route: 048

REACTIONS (1)
  - Cardiac failure [Fatal]

NARRATIVE: CASE EVENT DATE: 201403
